FAERS Safety Report 9482028 (Version 3)
Quarter: 2013Q4

REPORT INFORMATION
  Report Type: Spontaneous
  Country: US (occurrence: US)
  Receive Date: 20130828
  Receipt Date: 20131105
  Transmission Date: 20140711
  Serious: Yes (Hospitalization)
  Sender: FDA-Public Use
  Company Number: US-CELGENEUS-163-21880-13082448

PATIENT
  Age: 60 Year
  Sex: Female
  Weight: 91.2 kg

DRUGS (19)
  1. REVLIMID [Suspect]
     Indication: PLASMA CELL MYELOMA
     Dosage: 25 MILLIGRAM
     Route: 048
     Dates: start: 20130603, end: 201307
  2. REVLIMID [Suspect]
     Dosage: 15 MILLIGRAM
     Route: 048
     Dates: start: 20130819
  3. TYLENOL [Suspect]
     Indication: PRODUCT USED FOR UNKNOWN INDICATION
     Route: 065
  4. AZITHROMYCIN [Concomitant]
     Indication: PRODUCT USED FOR UNKNOWN INDICATION
     Dosage: 250-500 MG
     Route: 065
     Dates: start: 20130729
  5. PROCHLORPERAZINE [Concomitant]
     Indication: PRODUCT USED FOR UNKNOWN INDICATION
     Route: 065
  6. GABAPENTIN [Concomitant]
     Indication: PRODUCT USED FOR UNKNOWN INDICATION
     Route: 065
  7. CYMBALTA [Concomitant]
     Indication: PRODUCT USED FOR UNKNOWN INDICATION
     Route: 065
  8. HYDROMORPHONE [Concomitant]
     Indication: PRODUCT USED FOR UNKNOWN INDICATION
     Route: 065
  9. DEXAMETHASONE [Concomitant]
     Indication: CHEMOTHERAPY
     Route: 048
     Dates: start: 20130603
  10. ONDANSETRON HCL [Concomitant]
     Indication: PRODUCT USED FOR UNKNOWN INDICATION
     Route: 065
  11. ACYCLOVIR [Concomitant]
     Indication: PROPHYLAXIS
     Dosage: 800 MILLIGRAM
     Route: 048
     Dates: start: 20130603
  12. DIAZEPAM [Concomitant]
     Indication: PRODUCT USED FOR UNKNOWN INDICATION
     Route: 065
  13. HYDROCODONE-ACETAMINOPHEN [Concomitant]
     Indication: PRODUCT USED FOR UNKNOWN INDICATION
     Dosage: 5-325
     Route: 065
  14. ASPIRIN EC [Concomitant]
     Indication: PRODUCT USED FOR UNKNOWN INDICATION
     Route: 065
  15. NEURONTIN [Concomitant]
     Indication: NEURALGIA
     Dosage: 300 MILLIGRAM
     Route: 048
     Dates: start: 20130625
  16. NORCO [Concomitant]
     Indication: PAIN
     Dosage: 1-2 TABS
     Route: 048
     Dates: start: 20130701
  17. MS-CONTIN [Concomitant]
     Indication: PAIN
     Dosage: 45 MILLIGRAM
     Route: 048
     Dates: start: 20130808
  18. OMEPRAZOLE [Concomitant]
     Indication: PRODUCT USED FOR UNKNOWN INDICATION
     Dosage: 20 MILLIGRAM
     Route: 065
  19. ZOFRAN [Concomitant]
     Indication: PRODUCT USED FOR UNKNOWN INDICATION
     Dosage: 24 MILLIGRAM
     Route: 065

REACTIONS (5)
  - Pneumonia [Recovered/Resolved]
  - Upper respiratory tract infection [Recovered/Resolved]
  - Asthma [Recovered/Resolved]
  - Cardiac failure congestive [Recovered/Resolved]
  - Liver function test abnormal [Recovered/Resolved]
